FAERS Safety Report 6338973-2 (Version None)
Quarter: 2009Q3

REPORT INFORMATION
  Report Type: 
  Country: None (occurrence: None)
  Receive Date: 20090903
  Receipt Date: 20090829
  Transmission Date: 20100115
  Serious: Yes (Other)
  Sender: FDA-Public Use
  Company Number: TW-ASTRAZENECA-2009SE10210

PATIENT
  Age: 53 Year
  Sex: Female

DRUGS (5)
  1. QUETIAPINE [Suspect]
     Indication: AFFECTIVE DISORDER
  2. VALPROATE SODIUM [Suspect]
     Indication: BIPOLAR DISORDER
  3. VALPROATE SODIUM [Suspect]
     Indication: MANIA
  4. VALPROATE SODIUM [Suspect]
  5. VALPROATE SODIUM [Suspect]

REACTIONS (2)
  - DELIRIUM [None]
  - DRUG INTERACTION [None]
